FAERS Safety Report 9214065 (Version 1)
Quarter: 2013Q2

REPORT INFORMATION
  Report Type: Spontaneous
  Country: US (occurrence: None)
  Receive Date: 20130404
  Receipt Date: 20130404
  Transmission Date: 20140414
  Serious: Yes (Disabling)
  Sender: FDA-Public Use
  Company Number: None

PATIENT
  Age: 75 Year
  Sex: Male
  Weight: 85.9 kg

DRUGS (1)
  1. LEVOFLOXACIN [Suspect]
     Dates: start: 20130313, end: 20130320

REACTIONS (1)
  - Tendon pain [None]
